FAERS Safety Report 5338760-8 (Version None)
Quarter: 2007Q2

REPORT INFORMATION
  Report Type: 
  Country: None (occurrence: None)
  Receive Date: 20070322
  Receipt Date: 20060410
  Transmission Date: 20071010
  Serious: Yes (Other)
  Sender: FDA-Public Use
  Company Number: 200610474BCC

PATIENT
  Age: 16 Year
  Sex: Female
  Weight: 44.9061 kg

DRUGS (3)
  1. ALEVE (CAPLET) [Suspect]
     Indication: HEADACHE
     Dosage: 2200 MG, ONCE, ORAL
     Route: 048
     Dates: start: 20060127
  2. ALEVE (CAPLET) [Suspect]
     Indication: SUICIDAL IDEATION
     Dosage: 2200 MG, ONCE, ORAL
     Route: 048
     Dates: start: 20060127
  3. MOTRIN [Suspect]

REACTIONS (1)
  - VOMITING [None]
